FAERS Safety Report 6787962-2 (Version None)
Quarter: 2010Q2

REPORT INFORMATION
  Report Type: 
  Country: None (occurrence: None)
  Receive Date: 20100623
  Receipt Date: 20080214
  Transmission Date: 20101027
  Serious: Yes (Other)
  Sender: FDA-Public Use
  Company Number: US-PFIZER INC-2007103419

PATIENT
  Sex: Male
  Weight: 131 kg

DRUGS (8)
  1. SOLU-MEDROL [Suspect]
     Indication: TRANSPLANT REJECTION
     Route: 042
     Dates: start: 20071122, end: 20071124
  2. PEPCID [Concomitant]
  3. VALTREX [Concomitant]
  4. BACTRIM [Concomitant]
  5. CELLCEPT [Concomitant]
  6. PREDNISONE [Concomitant]
  7. PROGRAF [Concomitant]
  8. TIAZAC [Concomitant]

REACTIONS (1)
  - BLOOD PRESSURE INCREASED [None]
